FAERS Safety Report 6590077-X (Version None)
Quarter: 2010Q1

REPORT INFORMATION
  Report Type: 
  Country: None (occurrence: None)
  Receive Date: 20100219
  Receipt Date: 20100216
  Transmission Date: 20100710
  Serious: Yes (Death, Hospitalization)
  Sender: FDA-Public Use
  Company Number: PHEH2010US00470

PATIENT
  Sex: Male
  Weight: 86.168 kg

DRUGS (1)
  1. EXJADE [Suspect]
     Indication: IRON OVERLOAD
     Dosage: 1500 MG DAILY
     Route: 048
     Dates: start: 20090413

REACTIONS (3)
  - ASTHENIA [None]
  - MALAISE [None]
  - MALIGNANT NEOPLASM PROGRESSION [None]
